FAERS Safety Report 7129782-5 (Version None)
Quarter: 2010Q4

REPORT INFORMATION
  Report Type: 
  Country: None (occurrence: None)
  Receive Date: 20101130
  Receipt Date: 20101105
  Transmission Date: 20110411
  Serious: Yes (Other)
  Sender: FDA-Public Use
  Company Number: US-AMGEN-USASP2010003825

PATIENT
  Sex: Female

DRUGS (6)
  1. NEUPOGEN [Suspect]
     Indication: IDIOPATHIC NEUTROPENIA
     Dosage: 300 A?G, 2 TIMES/WK
     Dates: start: 20101001, end: 20101101
  2. NAPROSYN [Concomitant]
  3. PERCOCET [Concomitant]
  4. LEXAPRO [Concomitant]
  5. MULTIVITAMIN                       /00097801/ [Concomitant]
  6. CALTRATE WITH VITAMIN D [Concomitant]

REACTIONS (6)
  - ABASIA [None]
  - GAIT DISTURBANCE [None]
  - HEADACHE [None]
  - JOINT STIFFNESS [None]
  - JOINT SWELLING [None]
  - OEDEMA PERIPHERAL [None]
